FAERS Safety Report 26189843 (Version 1)
Quarter: 2025Q4

REPORT INFORMATION
  Report Type: Spontaneous
  Country: US (occurrence: US)
  Receive Date: 20251223
  Receipt Date: 20251223
  Transmission Date: 20260118
  Serious: Yes (Other)
  Sender: ZYDUS PHARM
  Company Number: US-CADILA HEALTHCARE LIMITED-US-ZYDUS-131968

PATIENT

DRUGS (1)
  1. METHYLENE BLUE [Suspect]
     Active Substance: METHYLENE BLUE
     Indication: Vitrectomy
     Dosage: UNK

REACTIONS (2)
  - Retinal toxicity [Unknown]
  - Accidental exposure to product [Unknown]
